FAERS Safety Report 5394020-0 (Version None)
Quarter: 2007Q3

REPORT INFORMATION
  Report Type: 
  Country: None (occurrence: None)
  Receive Date: 20070723
  Receipt Date: 20070117
  Transmission Date: 20080115
  Serious: No
  Sender: FDA-Public Use
  Company Number: A0636173A

PATIENT
  Age: 55 Year
  Sex: Male
  Weight: 127.3 kg

DRUGS (2)
  1. AVANDIA [Suspect]
     Route: 048
  2. GLUCOPHAGE [Suspect]

REACTIONS (1)
  - MALAISE [None]
